FAERS Safety Report 21217986 (Version 1)
Quarter: 2022Q3

REPORT INFORMATION
  Report Type: Spontaneous
  Country: US (occurrence: None)
  Receive Date: 20220815
  Receipt Date: 20220815
  Transmission Date: 20221026
  Serious: Yes (Hospitalization)
  Sender: FDA-Public Use
  Company Number: None

PATIENT
  Age: 66 Year
  Sex: Male

DRUGS (7)
  1. XGEVA [Suspect]
     Active Substance: DENOSUMAB
     Indication: Prostate cancer
     Dosage: OTHER QUANTITY : 1.7ML;?FREQUENCY : MONTHLY;?
     Route: 058
     Dates: start: 20220726
  2. XGEVA [Suspect]
     Active Substance: DENOSUMAB
     Indication: Metastases to bone
  3. XGEVA [Suspect]
     Active Substance: DENOSUMAB
     Indication: Retinal vein occlusion
  4. XGEVA [Suspect]
     Active Substance: DENOSUMAB
     Indication: Macular oedema
  5. XGEVA [Suspect]
     Active Substance: DENOSUMAB
     Indication: Uveitis
  6. ERLEADA [Suspect]
     Active Substance: APALUTAMIDE
  7. ELIGARD [Concomitant]
     Active Substance: LEUPROLIDE ACETATE

REACTIONS (4)
  - Hypoaesthesia [None]
  - Therapy cessation [None]
  - Blood calcium decreased [None]
  - Blood magnesium decreased [None]

NARRATIVE: CASE EVENT DATE: 20220807
